FAERS Safety Report 6554421-1 (Version None)
Quarter: 2010Q1

REPORT INFORMATION
  Report Type: 
  Country: None (occurrence: None)
  Receive Date: 20100127
  Receipt Date: 20100112
  Transmission Date: 20100710
  Serious: Yes (Disabling, Other)
  Sender: FDA-Public Use
  Company Number: US-B.I. PHARMACEUTICALS,INC./RIDGEFIELD-2010-DE-00154GD

PATIENT
  Sex: Female

DRUGS (6)
  1. PRAMIPEXOLE DIHYDROCHLORIDE [Suspect]
     Indication: PARKINSON'S DISEASE
     Dosage: 4.5 MG
  2. PRAMIPEXOLE DIHYDROCHLORIDE [Suspect]
     Dosage: 3 MG
  3. PRAMIPEXOLE DIHYDROCHLORIDE [Suspect]
     Dosage: 0.25 MG
  4. LEVODOPA [Concomitant]
     Indication: PARKINSON'S DISEASE
     Dosage: 300 MG
  5. LEVODOPA [Concomitant]
     Dosage: 600 MG
  6. LEVODOPA [Concomitant]
     Dosage: 1100 MG

REACTIONS (14)
  - AGITATION [None]
  - ANXIETY [None]
  - COMPULSIONS [None]
  - COMPULSIVE SHOPPING [None]
  - CRYING [None]
  - DEPRESSION [None]
  - DRUG WITHDRAWAL SYNDROME [None]
  - EATING DISORDER [None]
  - FATIGUE [None]
  - IMPAIRED WORK ABILITY [None]
  - IMPULSE-CONTROL DISORDER [None]
  - INSOMNIA [None]
  - ORTHOSTATIC HYPOTENSION [None]
  - RESTLESS LEGS SYNDROME [None]
